FAERS Safety Report 18554964 (Version 1)
Quarter: 2020Q4

REPORT INFORMATION
  Report Type: Spontaneous
  Country: US (occurrence: US)
  Receive Date: 20201127
  Receipt Date: 20201127
  Transmission Date: 20210114
  Serious: Yes (Hospitalization, Other)
  Sender: FDA-Public Use
  Company Number: US-PURDUE-USA-2020-0177771

PATIENT
  Age: 52 Year
  Sex: Female

DRUGS (7)
  1. OXYCONTIN [Suspect]
     Active Substance: OXYCODONE HYDROCHLORIDE
     Dosage: 160 MG, DAILY
     Route: 048
  2. OXYCODONE HYDROCHLORIDE (SIMILAR TO NDA 22-272) [Suspect]
     Active Substance: OXYCODONE HYDROCHLORIDE
     Indication: PRODUCT USED FOR UNKNOWN INDICATION
     Dosage: UNK
     Route: 048
  3. OXYCODONE HCL TABLETS (RHODES 91-490) [Suspect]
     Active Substance: OXYCODONE HYDROCHLORIDE
     Indication: PRODUCT USED FOR UNKNOWN INDICATION
     Dosage: UNK
     Route: 048
  4. OXYCODONE HCL CR TABLETS (SIMILAR TO NDA 22-272) [Suspect]
     Active Substance: OXYCODONE HYDROCHLORIDE
     Indication: PRODUCT USED FOR UNKNOWN INDICATION
     Dosage: UNK
     Route: 048
  5. OXYCONTIN [Suspect]
     Active Substance: OXYCODONE HYDROCHLORIDE
     Indication: MIGRAINE
     Dosage: UNK
     Route: 048
     Dates: start: 2000, end: 200911
  6. HYDROCODONE BITARTRATE (SIMILAR TO NDA 206627) [Suspect]
     Active Substance: HYDROCODONE BITARTRATE
     Indication: PRODUCT USED FOR UNKNOWN INDICATION
     Dosage: UNK
     Route: 048
  7. XANAX [Concomitant]
     Active Substance: ALPRAZOLAM
     Indication: ANXIETY
     Dosage: UNK
     Route: 065

REACTIONS (23)
  - Large intestinal obstruction [Unknown]
  - Medication overuse headache [Unknown]
  - Dry mouth [Unknown]
  - Dizziness [Unknown]
  - Foetal death [Unknown]
  - Drug dependence [Unknown]
  - Urine output decreased [Unknown]
  - Restless legs syndrome [Unknown]
  - Weight increased [Unknown]
  - Emotional distress [Unknown]
  - Oedema peripheral [Unknown]
  - Paraesthesia [Unknown]
  - Pain [Unknown]
  - Cardiac failure congestive [Unknown]
  - Fluid retention [Unknown]
  - Amnesia [Unknown]
  - Face oedema [Unknown]
  - Impaired driving ability [Unknown]
  - Exposure during pregnancy [Unknown]
  - Drug tolerance [Unknown]
  - Agitation [Unknown]
  - Insomnia [Unknown]
  - Constipation [Unknown]

NARRATIVE: CASE EVENT DATE: 20091109
